FAERS Safety Report 24144980 (Version 1)
Quarter: 2024Q3

REPORT INFORMATION
  Report Type: Spontaneous
  Country: US (occurrence: US)
  Receive Date: 20240729
  Receipt Date: 20240729
  Transmission Date: 20241016
  Serious: No
  Sender: AMGEN
  Company Number: US-AMGEN-USASP2024147000

PATIENT
  Age: 66 Year
  Sex: Male

DRUGS (4)
  1. VECTIBIX [Suspect]
     Active Substance: PANITUMUMAB
     Indication: BRAF gene mutation
     Dosage: UNK UNK, Q2WK
     Route: 065
     Dates: start: 20230315
  2. VECTIBIX [Suspect]
     Active Substance: PANITUMUMAB
     Indication: Colon cancer stage IV
  3. BRAFTOVI [Suspect]
     Active Substance: ENCORAFENIB
     Indication: BRAF gene mutation
     Dosage: 75 MILLIGRAM, QD, AKES FOUR CAPSULES DAILY BY MOUTH
     Route: 048
     Dates: start: 20230315
  4. BRAFTOVI [Suspect]
     Active Substance: ENCORAFENIB
     Indication: Colon cancer stage IV
     Dosage: 75 MILLIGRAM, QD, AKES FOUR CAPSULES DAILY BY MOUTH
     Route: 048
     Dates: start: 20240413, end: 20240417

REACTIONS (12)
  - Pain [Not Recovered/Not Resolved]
  - Contusion [Not Recovered/Not Resolved]
  - Arthritis [Not Recovered/Not Resolved]
  - Brain natriuretic peptide increased [Unknown]
  - Erythema [Not Recovered/Not Resolved]
  - Paraesthesia [Unknown]
  - Flushing [Recovering/Resolving]
  - Palpitations [Recovering/Resolving]
  - Dyspnoea [Recovering/Resolving]
  - Heart rate increased [Recovering/Resolving]
  - Fatigue [Recovering/Resolving]
  - Rotator cuff syndrome [Recovering/Resolving]

NARRATIVE: CASE EVENT DATE: 20230101
